FAERS Safety Report 8980163 (Version 1)
Quarter: 2012Q4

REPORT INFORMATION
  Report Type: Report from Study
  Country: US (occurrence: US)
  Receive Date: 20121221
  Receipt Date: 20121221
  Transmission Date: 20130627
  Serious: Yes (Other)
  Sender: FDA-Public Use
  Company Number: US-US-EMD SERONO, INC.-7183066

PATIENT
  Sex: Male

DRUGS (1)
  1. REBIF [Suspect]
     Indication: PRODUCT USED FOR UNKNOWN INDICATION
     Route: 058
     Dates: start: 20110509

REACTIONS (7)
  - Inguinal hernia [Unknown]
  - Platelet count decreased [Unknown]
  - Scrotal pain [Not Recovered/Not Resolved]
  - Monocyte count increased [Unknown]
  - Neutrophil count abnormal [Unknown]
  - Influenza like illness [Recovered/Resolved]
  - White blood cell count abnormal [Unknown]
